FAERS Safety Report 20964422 (Version 2)
Quarter: 2022Q4

REPORT INFORMATION
  Report Type: Spontaneous
  Country: JP (occurrence: JP)
  Receive Date: 20220615
  Receipt Date: 20221027
  Transmission Date: 20230113
  Serious: Yes (Hospitalization)
  Sender: FDA-Public Use
  Company Number: JP-Eisai-202203045_LEN-HCC_P_1

PATIENT
  Age: 59 Year
  Sex: Male

DRUGS (1)
  1. LENVATINIB [Suspect]
     Active Substance: LENVATINIB
     Indication: Hepatocellular carcinoma
     Route: 048

REACTIONS (7)
  - Hepatic infarction [Unknown]
  - Oesophageal varices haemorrhage [Unknown]
  - Hepatic failure [Unknown]
  - Renal impairment [Unknown]
  - Aspartate aminotransferase increased [Unknown]
  - Platelet count decreased [Unknown]
  - Fatigue [Unknown]
